FAERS Safety Report 12678577 (Version 1)
Quarter: 2016Q3

REPORT INFORMATION
  Report Type: Report from Study
  Country: PE (occurrence: PE)
  Receive Date: 20160823
  Receipt Date: 20160823
  Transmission Date: 20161109
  Serious: Yes (Other)
  Sender: FDA-Public Use
  Company Number: PE-009507513-1608PER011559

PATIENT
  Age: 2 Year
  Sex: Female

DRUGS (3)
  1. SINGULAIR [Suspect]
     Active Substance: MONTELUKAST SODIUM
     Indication: SINUSITIS
     Dosage: 5 MG, QD
     Route: 048
     Dates: start: 201605, end: 2016
  2. SINGULAIR [Suspect]
     Active Substance: MONTELUKAST SODIUM
     Indication: RHINITIS
     Dosage: 4 MG, QD AFTER LUNCH
     Route: 048
     Dates: start: 2013
  3. SINGULAIR [Suspect]
     Active Substance: MONTELUKAST SODIUM
     Dosage: 5 MG, QD
     Route: 048
     Dates: start: 20160815

REACTIONS (9)
  - Cough [Not Recovered/Not Resolved]
  - Rhinorrhoea [Not Recovered/Not Resolved]
  - Respiratory tract infection [Recovered/Resolved]
  - Sinusitis [Unknown]
  - Product use issue [Unknown]
  - Malaise [Not Recovered/Not Resolved]
  - Constipation [Recovered/Resolved]
  - Diarrhoea [Recovered/Resolved]
  - Drug dose omission [Unknown]

NARRATIVE: CASE EVENT DATE: 2013
